FAERS Safety Report 9865107 (Version 3)
Quarter: 2014Q1

REPORT INFORMATION
  Report Type: Report from Study
  Country: US (occurrence: US)
  Receive Date: 20140203
  Receipt Date: 20140211
  Transmission Date: 20141002
  Serious: Yes (Death, Life-Threatening, Hospitalization)
  Sender: FDA-Public Use
  Company Number: US-ACTELION-A-US2013-90963

PATIENT
  Age: 3 Year
  Sex: Female

DRUGS (4)
  1. TRACLEER [Suspect]
     Indication: PULMONARY HYPERTENSION
     Dosage: UNK
     Route: 048
     Dates: start: 20130226, end: 20131122
  2. REMODULIN [Suspect]
     Route: 042
  3. MILRINONE [Suspect]
  4. SILDENAFIL [Concomitant]

REACTIONS (4)
  - Pulmonary hypertension [Fatal]
  - Parainfluenzae virus infection [Fatal]
  - Haemodynamic instability [Recovering/Resolving]
  - Respiratory distress [Recovering/Resolving]
